FAERS Safety Report 11231174 (Version 1)
Quarter: 2015Q2

REPORT INFORMATION
  Report Type: Spontaneous
  Country: US (occurrence: None)
  Receive Date: 20150629
  Receipt Date: 20150629
  Transmission Date: 20150821
  Serious: No
  Sender: FDA-Public Use
  Company Number: None

PATIENT
  Age: 64 Year
  Sex: Female
  Weight: 58.97 kg

DRUGS (1)
  1. MONISTAT 1 COMBINATION PACK [Suspect]
     Active Substance: MICONAZOLE NITRATE
     Indication: VULVOVAGINAL MYCOTIC INFECTION

REACTIONS (4)
  - Vulvovaginal discomfort [None]
  - Vulvovaginal pruritus [None]
  - Vulvovaginal burning sensation [None]
  - Genital tract inflammation [None]

NARRATIVE: CASE EVENT DATE: 20150624
